FAERS Safety Report 19642280 (Version 1)
Quarter: 2021Q3

REPORT INFORMATION
  Report Type: Spontaneous
  Country: US (occurrence: US)
  Receive Date: 20210730
  Receipt Date: 20210730
  Transmission Date: 20211014
  Serious: No
  Sender: FDA-Public Use
  Company Number: US-SA-2021SA246796

PATIENT

DRUGS (1)
  1. CAMPATH [Suspect]
     Active Substance: ALEMTUZUMAB
     Dosage: DRUG STRUCTURE DOSAGE : UNKNOWN DRUG INTERVAL DOSAGE : UNKNOWN

REACTIONS (2)
  - Therapeutic response decreased [Unknown]
  - Therapy cessation [Unknown]
